FAERS Safety Report 9697015 (Version 1)
Quarter: 2013Q4

REPORT INFORMATION
  Report Type: Spontaneous
  Country: CA (occurrence: CA)
  Receive Date: 20131119
  Receipt Date: 20131119
  Transmission Date: 20140711
  Serious: Yes (Other)
  Sender: FDA-Public Use
  Company Number: CA-AMGEN-CANSP2013080650

PATIENT
  Age: 85 Year
  Sex: Female
  Weight: 60.77 kg

DRUGS (20)
  1. PROLIA [Suspect]
     Indication: PRODUCT USED FOR UNKNOWN INDICATION
     Dosage: 60 MG, ONCE
     Route: 058
  2. APO-CHLORDIAZEPOXIDE [Concomitant]
  3. APO-DOXEPIN [Concomitant]
  4. APO-HYDRO [Concomitant]
  5. APO-NABUMETONE [Concomitant]
  6. APO-NADOL [Concomitant]
  7. APO-RANITIDINE [Concomitant]
  8. CALCIUM + VITAMIN D                /01483701/ [Concomitant]
  9. ECHINACEA PURPUREA [Concomitant]
  10. FOLIC ACID [Concomitant]
  11. GLUCOSAMINE [Concomitant]
  12. KWAI GARLIC [Concomitant]
  13. LECITHIN [Concomitant]
  14. NORVASC [Concomitant]
  15. SLOW-K [Concomitant]
  16. TARO-WARFARIN [Concomitant]
  17. TRAMACET [Concomitant]
  18. VITAMIN B COMPLEX [Concomitant]
  19. VITAMIN C                          /00008001/ [Concomitant]
  20. VITAMIN D                          /00107901/ [Concomitant]

REACTIONS (3)
  - Dyspnoea [Unknown]
  - International normalised ratio increased [Unknown]
  - Arthralgia [Unknown]
